FAERS Safety Report 23015970 (Version 1)
Quarter: 2023Q4

REPORT INFORMATION
  Report Type: Spontaneous
  Country: US (occurrence: None)
  Receive Date: 20231001
  Receipt Date: 20231001
  Transmission Date: 20240109
  Serious: Yes (Other)
  Sender: FDA-Public Use
  Company Number: None

PATIENT
  Age: 70 Year
  Sex: Female
  Weight: 105.3 kg

DRUGS (8)
  1. DULOXETINE HYDROCHLORIDE [Suspect]
     Active Substance: DULOXETINE HYDROCHLORIDE
     Indication: Neuralgia
     Dosage: FREQUENCY : DAILY;?
     Route: 048
     Dates: start: 20230925, end: 20230926
  2. GABAPENTIN [Concomitant]
     Active Substance: GABAPENTIN
  3. VITAMINS [Concomitant]
     Active Substance: VITAMINS
  4. C [Concomitant]
  5. E [Concomitant]
  6. COENZYME Q10 [Concomitant]
     Active Substance: DIETARY SUPPLEMENT\UBIDECARENONE
  7. HERBALS\TURMERIC [Concomitant]
     Active Substance: HERBALS\TURMERIC
  8. KRILL OIL [Concomitant]
     Active Substance: DIETARY SUPPLEMENT\KRILL OIL

REACTIONS (10)
  - Headache [None]
  - Myalgia [None]
  - Fatigue [None]
  - Asthenia [None]
  - Dizziness [None]
  - Chills [None]
  - Tremor [None]
  - Body temperature increased [None]
  - Arthralgia [None]
  - Heart rate increased [None]

NARRATIVE: CASE EVENT DATE: 20230926
